FAERS Safety Report 4396157-1 (Version None)
Quarter: 2004Q3

REPORT INFORMATION
  Report Type: 
  Country: None (occurrence: None)
  Receive Date: 20040708
  Receipt Date: 20040625
  Transmission Date: 20050211
  Serious: Yes (Hospitalization)
  Sender: FDA-Public Use
  Company Number: 192130

PATIENT
  Age: 37 Year
  Sex: Female
  Weight: 61.2356 kg

DRUGS (4)
  1. AVONEX [Suspect]
     Indication: MULTIPLE SCLEROSIS
     Dosage: 30 MCG QW IM
     Route: 030
     Dates: start: 20030201, end: 20030901
  2. AVONEX [Suspect]
     Indication: MULTIPLE SCLEROSIS
     Dosage: 30 MCG QW IM
     Route: 030
     Dates: start: 20030901
  3. ACYCLOVIR [Concomitant]
  4. LIPITOR [Concomitant]

REACTIONS (9)
  - ALCOHOL USE [None]
  - CONDITION AGGRAVATED [None]
  - DEHYDRATION [None]
  - HEADACHE [None]
  - INFLUENZA LIKE ILLNESS [None]
  - MIGRAINE [None]
  - MULTIPLE SCLEROSIS [None]
  - SINUS OPERATION [None]
  - VOMITING [None]
